FAERS Safety Report 9453229 (Version 2)
Quarter: 2013Q3

REPORT INFORMATION
  Report Type: Spontaneous
  Country: FR (occurrence: FR)
  Receive Date: 20130812
  Receipt Date: 20130814
  Transmission Date: 20140515
  Serious: Yes (Hospitalization)
  Sender: FDA-Public Use
  Company Number: FR-PFIZER INC-2013232152

PATIENT
  Age: 80 Year
  Sex: Male

DRUGS (15)
  1. TRIATEC [Suspect]
     Indication: CARDIAC FAILURE
     Dosage: 2.5 MG, 1 TABLET TWICE DAILY
     Route: 048
     Dates: start: 20130308, end: 20130510
  2. TRIATEC [Suspect]
     Dosage: 2.5 MG, 1 TABLET TWICE DAILY
     Route: 048
     Dates: start: 20130531, end: 20130601
  3. LASILIX [Suspect]
     Indication: CARDIAC FAILURE
     Dosage: 40 MG, 1 TABLET DAILY
     Route: 048
     Dates: start: 20130308, end: 20130510
  4. LASILIX [Suspect]
     Dosage: 40 MG, 1 TABLET DAILY
     Route: 048
     Dates: start: 20130526, end: 20130614
  5. LAROSCORBINE [Concomitant]
     Dosage: UNK
     Dates: end: 20130510
  6. PLAVIX [Concomitant]
     Dosage: UNK
     Dates: start: 20130329, end: 20130510
  7. ATARAX [Concomitant]
     Indication: INSOMNIA
     Dosage: UNK
  8. AERIUS [Concomitant]
     Indication: ASTHMA
     Dosage: UNK
  9. SPECIAFOLDINE [Concomitant]
     Dosage: UNK
  10. VITAMIN B1 AND B6 [Concomitant]
     Dosage: UNK
     Dates: end: 20130510
  11. ALDACTONE [Concomitant]
     Dosage: UNK
     Dates: end: 20130510
  12. VITAMIN B12 [Concomitant]
     Dosage: UNK
     Dates: end: 20130510
  13. KARDEGIC [Concomitant]
     Dosage: UNK
  14. ASPRIN [Concomitant]
     Dosage: UNK
  15. PYOSTACINE [Concomitant]
     Indication: WOUND

REACTIONS (4)
  - Dermatitis exfoliative [Recovering/Resolving]
  - Toxic skin eruption [Recovering/Resolving]
  - Arthropathy [Unknown]
  - Anaemia [Unknown]
